FAERS Safety Report 24789576 (Version 1)
Quarter: 2024Q4

REPORT INFORMATION
  Report Type: Spontaneous
  Country: US (occurrence: None)
  Receive Date: 20241229
  Receipt Date: 20241229
  Transmission Date: 20250115
  Serious: Yes (Other)
  Sender: Public
  Company Number: None

PATIENT
  Age: 82 Year
  Sex: Male
  Weight: 65.25 kg

DRUGS (1)
  1. LEVOFLOXACIN [Suspect]
     Active Substance: LEVOFLOXACIN
     Dates: start: 20241205, end: 20241219

REACTIONS (4)
  - Hallucination [None]
  - Nightmare [None]
  - Neck pain [None]
  - Myalgia [None]

NARRATIVE: CASE EVENT DATE: 20241205
